FAERS Safety Report 5939256-2 (Version None)
Quarter: 2008Q4

REPORT INFORMATION
  Report Type: 
  Country: None (occurrence: None)
  Receive Date: 20081103
  Receipt Date: 20081021
  Transmission Date: 20090506
  Serious: Yes (Life-Threatening, Hospitalization)
  Sender: FDA-Public Use
  Company Number: JP-AMGEN-US312539

PATIENT
  Sex: Female
  Weight: 49 kg

DRUGS (6)
  1. ENBREL [Suspect]
     Indication: RHEUMATOID ARTHRITIS
     Route: 058
     Dates: start: 20070406, end: 20080912
  2. RHEUMATREX [Suspect]
     Indication: RHEUMATOID ARTHRITIS
     Route: 048
     Dates: start: 20070409, end: 20080912
  3. BENET [Concomitant]
     Route: 048
     Dates: start: 20071219, end: 20080818
  4. SELBEX [Concomitant]
     Indication: GASTRITIS
     Route: 048
     Dates: start: 20071219
  5. CYTOTEC [Concomitant]
     Indication: GASTRITIS
     Dosage: 300U G/DAY
     Route: 048
     Dates: start: 20071219
  6. PREDONINE [Concomitant]
     Indication: RHEUMATOID ARTHRITIS
     Route: 048
     Dates: start: 20071219

REACTIONS (3)
  - ARTHRALGIA [None]
  - PNEUMOCYSTIS JIROVECI PNEUMONIA [None]
  - SPUTUM CULTURE POSITIVE [None]
